FAERS Safety Report 13680465 (Version 4)
Quarter: 2019Q4

REPORT INFORMATION
  Report Type: Spontaneous
  Country: US (occurrence: US)
  Receive Date: 20170623
  Receipt Date: 20191209
  Transmission Date: 20200122
  Serious: Yes (Hospitalization, Other)
  Sender: FDA-Public Use
  Company Number: US-UCBSA-2016041426

PATIENT
  Sex: Female

DRUGS (7)
  1. CIMZIA [Suspect]
     Active Substance: CERTOLIZUMAB PEGOL
     Dosage: 400 MG, MONTHLY (QM)
     Route: 058
     Dates: start: 2017, end: 2017
  2. IBUPROFEN. [Concomitant]
     Active Substance: IBUPROFEN
     Indication: PRODUCT USED FOR UNKNOWN INDICATION
  3. CIMZIA [Suspect]
     Active Substance: CERTOLIZUMAB PEGOL
     Dosage: 400 MG, MONTHLY (QM)
     Route: 058
     Dates: start: 20160907, end: 2016
  4. METOPROLOL TARTRATE. [Concomitant]
     Active Substance: METOPROLOL TARTRATE
     Indication: PRODUCT USED FOR UNKNOWN INDICATION
  5. CIMZIA [Suspect]
     Active Substance: CERTOLIZUMAB PEGOL
     Dosage: 400 MG, MONTHLY (QM) (NDC# 50474071079)
     Route: 058
     Dates: start: 2017, end: 2017
  6. CIMZIA [Suspect]
     Active Substance: CERTOLIZUMAB PEGOL
     Dosage: 400 MG, MONTHLY (QM)
     Route: 058
     Dates: start: 2017, end: 2017
  7. CIMZIA [Suspect]
     Active Substance: CERTOLIZUMAB PEGOL
     Indication: RHEUMATOID ARTHRITIS
     Dosage: 400 MG, MONTHLY (QM)
     Route: 058
     Dates: start: 20160907, end: 2016

REACTIONS (8)
  - Rheumatoid arthritis [Unknown]
  - Product dose omission [Unknown]
  - Loss of personal independence in daily activities [Unknown]
  - Swelling [Unknown]
  - Pain [Not Recovered/Not Resolved]
  - Infection [Unknown]
  - Hospitalisation [Unknown]
  - Surgery [Unknown]

NARRATIVE: CASE EVENT DATE: 2016
